FAERS Safety Report 5971676-2 (Version None)
Quarter: 2008Q4

REPORT INFORMATION
  Report Type: 
  Country: None (occurrence: None)
  Receive Date: 20081201
  Receipt Date: 20081121
  Transmission Date: 20090506
  Serious: Yes (Death, Life-Threatening, Hospitalization)
  Sender: FDA-Public Use
  Company Number: FR-SANOFI-SYNTHELABO-F01200801765

PATIENT
  Sex: Female

DRUGS (8)
  1. IMODIUM [Concomitant]
     Dates: start: 20081017
  2. BMS-690514 [Suspect]
     Dosage: 100 MG
     Route: 048
     Dates: start: 20081024
  3. FLUOROURACIL [Suspect]
     Dosage: UNK
     Route: 041
     Dates: start: 20081017
  4. LEUCOVORIN CALCIUM [Suspect]
     Dosage: UNK
     Route: 041
     Dates: start: 20081017, end: 20081017
  5. OXALIPLATIN [Suspect]
     Indication: NEOPLASM
     Dosage: UNK
     Route: 041
     Dates: start: 20081017, end: 20081017
  6. LOPERAMIDE HCL [Concomitant]
     Dates: start: 20081108, end: 20081111
  7. DI-ANTALVIC [Concomitant]
     Dates: start: 20081017
  8. KYTRIL [Concomitant]
     Dates: start: 20081017

REACTIONS (3)
  - FEBRILE NEUTROPENIA [None]
  - INTESTINAL OBSTRUCTION [None]
  - SEPTIC SHOCK [None]
